FAERS Safety Report 5290601-3 (Version None)
Quarter: 2007Q2

REPORT INFORMATION
  Report Type: 
  Country: None (occurrence: None)
  Receive Date: 20070405
  Receipt Date: 20070405
  Transmission Date: 20071010
  Serious: Yes (Hospitalization)
  Sender: FDA-Public Use
  Company Number: None

PATIENT
  Age: 20 Year
  Sex: Female
  Weight: 72.5 kg

DRUGS (3)
  1. REGULAR INSULIN [Suspect]
     Dosage: 10U SQ QAC
     Route: 058
  2. LANTUS [Suspect]
     Dosage: 10U SQ QD
  3. PHENYTOIN [Concomitant]

REACTIONS (3)
  - CONVULSION [None]
  - DIABETIC KETOACIDOSIS [None]
  - TREATMENT NONCOMPLIANCE [None]
